FAERS Safety Report 18666605 (Version 2)
Quarter: 2021Q1

REPORT INFORMATION
  Report Type: Spontaneous
  Country: US (occurrence: US)
  Receive Date: 20201227
  Receipt Date: 20210329
  Transmission Date: 20210419
  Serious: Yes (Death, Other)
  Sender: FDA-Public Use
  Company Number: US-TEVA-2020-US-1862734

PATIENT
  Age: 73 Year
  Sex: Male
  Weight: 95.25 kg

DRUGS (16)
  1. TESSALON [Concomitant]
     Active Substance: BENZONATATE
     Route: 065
     Dates: start: 20180208
  2. COMPAZINE [Concomitant]
     Active Substance: PROCHLORPERAZINE MALEATE
     Route: 065
     Dates: start: 20180123
  3. ZITHROMAX [Concomitant]
     Active Substance: AZITHROMYCIN DIHYDRATE
     Route: 065
     Dates: start: 20180213
  4. IBUPROFEN. [Concomitant]
     Active Substance: IBUPROFEN
     Indication: PAIN
     Dosage: 200MG AS NEEDED
     Dates: start: 2008, end: 20180301
  5. AMLODIPINE/VALSARTAN TEVA [Suspect]
     Active Substance: AMLODIPINE\VALSARTAN
     Indication: HYPERTENSION
     Route: 065
     Dates: start: 20150929, end: 20171217
  6. CARAFATE [Concomitant]
     Active Substance: SUCRALFATE
     Route: 065
     Dates: start: 20180123
  7. OMNICEF [Concomitant]
     Active Substance: CEFDINIR
     Indication: NEPHROLITHIASIS
     Route: 065
     Dates: start: 20180213
  8. PRILOSEC [Concomitant]
     Active Substance: OMEPRAZOLE MAGNESIUM
     Indication: GASTROOESOPHAGEAL REFLUX DISEASE
     Route: 065
     Dates: start: 20180123
  9. LISINOPRIL. [Concomitant]
     Active Substance: LISINOPRIL
     Indication: HYPERTENSION
     Route: 065
     Dates: start: 2014, end: 20180301
  10. IBUPROFEN. [Concomitant]
     Active Substance: IBUPROFEN
     Indication: HEADACHE
  11. EXFORGE [Concomitant]
     Active Substance: AMLODIPINE BESYLATE\VALSARTAN
     Dosage: 10/160 MG TABLET 1/2?1 PER ORAL PER DAY
     Route: 048
  12. MULTI?VITAMIN [Concomitant]
     Active Substance: .ALPHA.-TOCOPHEROL ACETATE, DL-\ASCORBIC ACID\CYANOCOBALAMIN\FLUORIDE ION\FOLIC ACID\NIACIN\PYRIDOXINE\RIBOFLAVIN\THIAMINE\VITAMIN A\VITAMIN D
     Route: 065
     Dates: start: 2010, end: 20180301
  13. OMNICEF [Concomitant]
     Active Substance: CEFDINIR
     Dates: start: 2015, end: 2015
  14. PRILOSEC [Concomitant]
     Active Substance: OMEPRAZOLE MAGNESIUM
     Route: 065
     Dates: end: 20140301
  15. ROXICODONE [Concomitant]
     Active Substance: OXYCODONE HYDROCHLORIDE
     Indication: PAIN
     Dosage: TAKE 5 ML (5 MG TOTAL) BY MOUTH EVERY FOUR (4) HOURS AS NEEDED
     Route: 048
     Dates: start: 20180119
  16. HYFROCHLOROTHIAZIDE [Concomitant]
     Route: 048

REACTIONS (3)
  - Gastric cancer [Unknown]
  - Hepatic cancer [Unknown]
  - Oesophageal carcinoma [Fatal]
